FAERS Safety Report 8746640 (Version 2)
Quarter: 2014Q1

REPORT INFORMATION
  Report Type: Not Available
  Country: CN (occurrence: CN)
  Receive Date: 20120827
  Receipt Date: 20140307
  Transmission Date: 20141002
  Serious: Yes (Other)
  Sender: FDA-Public Use
  Company Number: CN-ASTELLAS-2012US007240

PATIENT
  Age: 65 Year
  Sex: Male
  Weight: 74 kg

DRUGS (2)
  1. TARCEVA [Suspect]
     Indication: LUNG NEOPLASM MALIGNANT
     Dosage: 150 MG, UID/QD
     Route: 048
     Dates: start: 20090115, end: 20090316
  2. TARCEVA [Suspect]
     Dosage: 150 MG, UID/QD
     Route: 048
     Dates: start: 20090320

REACTIONS (2)
  - Henoch-Schonlein purpura [Recovered/Resolved]
  - Rash [Unknown]
